FAERS Safety Report 9150405 (Version 2)
Quarter: 2013Q2

REPORT INFORMATION
  Report Type: Spontaneous
  Country: NZ (occurrence: NZ)
  Receive Date: 20130308
  Receipt Date: 20130415
  Transmission Date: 20140414
  Serious: Yes (Life-Threatening, Hospitalization, Other)
  Sender: FDA-Public Use
  Company Number: NZ-AMGEN-NZLSP2013015963

PATIENT
  Age: 53 Year
  Sex: Male
  Weight: 70 kg

DRUGS (1)
  1. ENBREL [Suspect]
     Indication: ANKYLOSING SPONDYLITIS
     Dosage: 50 MG, WEEKLY
     Route: 058
     Dates: start: 2011

REACTIONS (6)
  - Haemorrhoids [Recovered/Resolved]
  - Hypotension [Recovered/Resolved]
  - Mycobacterium tuberculosis complex test positive [Unknown]
  - Abscess [Recovered/Resolved]
  - Staphylococcal infection [Recovered/Resolved]
  - Septic shock [Recovered/Resolved]
